FAERS Safety Report 7622535-0 (Version None)
Quarter: 2011Q3

REPORT INFORMATION
  Report Type: 
  Country: None (occurrence: None)
  Receive Date: 20110712
  Receipt Date: 20110627
  Transmission Date: 20111222
  Serious: Yes (Life-Threatening)
  Sender: FDA-Public Use
  Company Number: TCI2011A03530

PATIENT
  Age: 65 Year
  Sex: Female

DRUGS (33)
  1. CEFZON (CEFDINIR) [Concomitant]
  2. LIPITOR [Concomitant]
  3. MOBIC [Concomitant]
  4. STICK ZENOL (DIPHENHYDRAMINE, CAMPHOR, THYMOL, METHYL SALICYLATE, MENT [Concomitant]
  5. MYSER (DIFLUPREDNATE) [Concomitant]
  6. ALLEGRA [Concomitant]
  7. KINEDAK (EPALRESTAT) [Concomitant]
  8. MUCODYNE (CARBOCISTEINE) [Concomitant]
  9. MERISLON (BETAHISTINE MESILATE) [Concomitant]
  10. LAC B (LACTOBACILLUS BIFIDUS, LYOPHILIZED) [Concomitant]
  11. ACTOS [Suspect]
     Indication: DIABETES MELLITUS
     Dosage: 15 MG (15 MG, 1 IN 1 D) PER ORAL; 30 MG (30 MG, 1 IN 1 D) PER ORAL
     Route: 048
     Dates: start: 20090307, end: 20100109
  12. ACTOS [Suspect]
     Indication: DIABETES MELLITUS
     Dosage: 15 MG (15 MG, 1 IN 1 D) PER ORAL; 30 MG (30 MG, 1 IN 1 D) PER ORAL
     Route: 048
     Dates: start: 20070203, end: 20070514
  13. ACTOS [Suspect]
     Indication: DIABETES MELLITUS
     Dosage: 15 MG (15 MG, 1 IN 1 D) PER ORAL; 30 MG (30 MG, 1 IN 1 D) PER ORAL
     Route: 048
     Dates: start: 20051210, end: 20070202
  14. AMARYL [Concomitant]
  15. FLAVERIC (BENPROPERINE PHOSPHATE) [Concomitant]
  16. LOCOID [Concomitant]
  17. BASEN OD (VOGLIBOSE) [Concomitant]
  18. MUCOSTA (REBAMIPIDE) [Concomitant]
  19. PL (CAFFEINE, SALICYLAMIDE, PARACETAMOL, PROMETHAZINE METHYLENE DISALI [Concomitant]
  20. ISODINE [Concomitant]
  21. NAUZELIN (DOMPERIDONE) [Concomitant]
  22. DASEN (SERRAPEPTASE) [Concomitant]
  23. YAKUBAN (FLURBIPROFEN) [Concomitant]
  24. UREPEARL (UREA) [Concomitant]
  25. ADETPHOS (ADENOSINE TRIPHOSPHATE, DISODIUM SALT) [Concomitant]
  26. DEPAS (ETIZOLAM) [Concomitant]
  27. PRIMPERAN TAB [Concomitant]
  28. SOLITA-T3 (SODIUM LACTATE, POTASSIUM CHLORIDE, SODIUM CHLORIDE) [Concomitant]
  29. OLMESARTAN MEDOXOMIL [Concomitant]
  30. ADALAT [Concomitant]
  31. TICLOPIDINE HCL [Concomitant]
  32. CALBLOCK (AZELNIDIPINE) [Concomitant]
  33. ACTIT (MALTOSE, SODIUM ACETATE, POTASSIUM CHLORIDE, SODIUM CHLORIDE, P [Concomitant]

REACTIONS (4)
  - BLADDER CANCER [None]
  - WEIGHT INCREASED [None]
  - OEDEMA PERIPHERAL [None]
  - DIABETES MELLITUS INADEQUATE CONTROL [None]
